FAERS Safety Report 24177345 (Version 1)
Quarter: 2024Q3

REPORT INFORMATION
  Report Type: Spontaneous
  Country: FR (occurrence: FR)
  Receive Date: 20240806
  Receipt Date: 20240806
  Transmission Date: 20241017
  Serious: Yes (Other)
  Sender: AUROBINDO
  Company Number: FR-AFSSAPS-GR2024000952

PATIENT
  Age: 70 Year
  Sex: Male

DRUGS (4)
  1. AMOXICILLIN [Suspect]
     Active Substance: AMOXICILLIN
     Indication: Lung disorder
     Dosage: 2 GRAM, 3 TIMES A DAY (2 GRAMS 3/D)
     Route: 048
     Dates: start: 20240618
  2. AMOXICILLIN [Suspect]
     Active Substance: AMOXICILLIN
     Dosage: 0.1 GRAM, 3 TIMES A DAY (1 GRAM 3/D)
     Route: 048
     Dates: start: 20240611, end: 20240617
  3. CYCLOPHOSPHAMIDE [Suspect]
     Active Substance: CYCLOPHOSPHAMIDE
     Indication: Peripheral sensorimotor neuropathy
     Dosage: UNK
     Route: 042
     Dates: end: 20240610
  4. CLAVULANIC ACID [Suspect]
     Active Substance: CLAVULANIC ACID
     Indication: Lung disorder
     Dosage: 125 MILLIGRAM, 3 TIMES A DAY (125 MG 3/DAY)
     Route: 048
     Dates: start: 20240611

REACTIONS (1)
  - Hepatic cytolysis [Recovering/Resolving]

NARRATIVE: CASE EVENT DATE: 20240619
